FAERS Safety Report 13055552 (Version 1)
Quarter: 2016Q4

REPORT INFORMATION
  Report Type: Spontaneous
  Country: SE (occurrence: SE)
  Receive Date: 20161222
  Receipt Date: 20161222
  Transmission Date: 20170207
  Serious: Yes (Death, Other)
  Sender: FDA-Public Use
  Company Number: SE-CELGENEUS-SWE-2016123276

PATIENT
  Age: 72 Year

DRUGS (1)
  1. REVLIMID [Suspect]
     Active Substance: LENALIDOMIDE
     Indication: PRODUCT USED FOR UNKNOWN INDICATION
     Route: 048

REACTIONS (8)
  - Decreased appetite [Unknown]
  - Renal failure [Unknown]
  - Gastric haemorrhage [Unknown]
  - Fatigue [Unknown]
  - Constipation [Unknown]
  - Anaemia [Unknown]
  - Abdominal pain [Unknown]
  - Death [Fatal]
